FAERS Safety Report 5942609-X (Version None)
Quarter: 2008Q4

REPORT INFORMATION
  Report Type: 
  Country: None (occurrence: None)
  Receive Date: 20081103
  Receipt Date: 20081022
  Transmission Date: 20090506
  Serious: Yes (Hospitalization)
  Sender: FDA-Public Use
  Company Number: IMP_03928_2008

PATIENT
  Age: 53 Year
  Sex: Male

DRUGS (3)
  1. BUPROPION HCL [Suspect]
     Indication: EX-TOBACCO USER
     Dosage: (150 MG BID)
  2. METOPROLOL TARTRATE [Concomitant]
  3. PAROXETINE HCL [Concomitant]

REACTIONS (6)
  - ACUTE CORONARY SYNDROME [None]
  - ANGINA PECTORIS [None]
  - HYPOTENSION [None]
  - SEROTONIN SYNDROME [None]
  - SINUS BRADYCARDIA [None]
  - VENTRICULAR TACHYCARDIA [None]
